FAERS Safety Report 8596517-9 (Version None)
Quarter: 2012Q3

REPORT INFORMATION
  Report Type: 
  Country: None (occurrence: None)
  Receive Date: 20120806
  Receipt Date: 20120806
  Transmission Date: 20120928
  Serious: No
  Sender: FDA-Public Use
  Company Number: None

PATIENT
  Age: 62 Year
  Sex: Female
  Weight: 72.5755 kg

DRUGS (1)
  1. METOCLOPRAMIDE [Suspect]
     Dosage: 1 TABLET 4 TIMES DAILY PO
     Route: 048
     Dates: start: 20120717, end: 20120802

REACTIONS (4)
  - MUSCLE TWITCHING [None]
  - CONFUSIONAL STATE [None]
  - TREMOR [None]
  - BALANCE DISORDER [None]
